FAERS Safety Report 7462732-0 (Version None)
Quarter: 2011Q2

REPORT INFORMATION
  Report Type: 
  Country: None (occurrence: None)
  Receive Date: 20110506
  Receipt Date: 20110502
  Transmission Date: 20111010
  Serious: Yes (Hospitalization, Other)
  Sender: FDA-Public Use
  Company Number: SE-AMGEN-SWESP2011012562

PATIENT
  Age: 54 Year
  Sex: Male

DRUGS (1)
  1. ARANESP [Suspect]
     Indication: NEPHROGENIC ANAEMIA
     Dosage: 150 A?G, QMO
     Route: 058
     Dates: start: 20060101, end: 20101124

REACTIONS (12)
  - HIP FRACTURE [None]
  - CONVULSION [None]
  - NUTRITIONAL CONDITION ABNORMAL [None]
  - LEUKOPENIA [None]
  - SQUAMOUS CELL CARCINOMA OF SKIN [None]
  - WEIGHT DECREASED [None]
  - FEMUR FRACTURE [None]
  - ANAEMIA [None]
  - APLASIA PURE RED CELL [None]
  - THROMBOCYTOPENIA [None]
  - OESOPHAGITIS [None]
  - AZOTAEMIA [None]
